FAERS Safety Report 11760834 (Version 1)
Quarter: 2015Q4

REPORT INFORMATION
  Report Type: Spontaneous
  Country: IT (occurrence: IT)
  Receive Date: 20151120
  Receipt Date: 20151120
  Transmission Date: 20160304
  Serious: Yes (Hospitalization)
  Sender: FDA-Public Use
  Company Number: IT-BAYER-2015-469928

PATIENT
  Age: 82 Year
  Sex: Male

DRUGS (9)
  1. LISINOPRIL. [Concomitant]
     Active Substance: LISINOPRIL
  2. CARDIOASPIRIN [Suspect]
     Active Substance: ASPIRIN
  3. NOVONORM [Concomitant]
     Active Substance: REPAGLINIDE
  4. XARELTO [Suspect]
     Active Substance: RIVAROXABAN
     Dosage: UNK
  5. NITROGLYCERINE [Concomitant]
     Active Substance: NITROGLYCERIN
  6. POTASSIUM CANRENOATE [Concomitant]
     Active Substance: CANRENOATE POTASSIUM
  7. REPAGLINIDE. [Concomitant]
     Active Substance: REPAGLINIDE
  8. PARIET [Concomitant]
     Active Substance: RABEPRAZOLE SODIUM
  9. LANOXIN [Concomitant]
     Active Substance: DIGOXIN

REACTIONS (2)
  - Melaena [Recovering/Resolving]
  - Anaemia [Recovering/Resolving]

NARRATIVE: CASE EVENT DATE: 20151006
